FAERS Safety Report 6636502-7 (Version None)
Quarter: 2010Q1

REPORT INFORMATION
  Report Type: 
  Country: None (occurrence: None)
  Receive Date: 20100311
  Receipt Date: 20100304
  Transmission Date: 20100710
  Serious: Yes (Hospitalization)
  Sender: FDA-Public Use
  Company Number: DSU-2010-00920

PATIENT
  Age: 75 Year
  Sex: Female
  Weight: 89.3586 kg

DRUGS (2)
  1. BENICAR [Suspect]
     Indication: HYPERTENSION
     Dosage: 40 MILLIGRAM, TABLET
     Route: 048
     Dates: start: 20091201
  2. GABAPENTIN (GABAPENTIN) (GABAPENTIN) [Suspect]
     Indication: DRUG USE FOR UNKNOWN INDICATION
     Dates: start: 20100220

REACTIONS (3)
  - CYSTITIS [None]
  - HYPERSENSITIVITY [None]
  - INTESTINAL OBSTRUCTION [None]
